FAERS Safety Report 17550785 (Version 1)
Quarter: 2020Q1

REPORT INFORMATION
  Report Type: Spontaneous
  Country: US (occurrence: US)
  Receive Date: 20200309
  Receipt Date: 20200309
  Transmission Date: 20200409
  Serious: No
  Sender: FDA-Public Use
  Company Number: None

PATIENT
  Age: 41 Year
  Sex: Female

DRUGS (1)
  1. EPCLUSA [Suspect]
     Active Substance: SOFOSBUVIR\VELPATASVIR
     Indication: HEPATITIS C
     Dosage: ?          OTHER DOSE:100MG-40MG;?
     Route: 048
     Dates: start: 20200224

REACTIONS (3)
  - Urinary tract infection [None]
  - Migraine [None]
  - Fungal infection [None]

NARRATIVE: CASE EVENT DATE: 20200224
